FAERS Safety Report 4632952-9 (Version None)
Quarter: 2005Q2

REPORT INFORMATION
  Report Type: 
  Country: None (occurrence: None)
  Receive Date: 20050412
  Receipt Date: 20050401
  Transmission Date: 20051028
  Serious: Yes (Other)
  Sender: FDA-Public Use
  Company Number: US-ROCHE-400777

PATIENT
  Age: 43 Year
  Sex: Female
  Weight: 74.8 kg

DRUGS (5)
  1. PEGASYS [Suspect]
     Indication: HEPATITIS C
     Dosage: STRENGTH: 180MCG/0.5ML
     Route: 058
     Dates: start: 20040615
  2. COPEGUS [Suspect]
     Indication: HEPATITIS C
     Route: 048
     Dates: start: 20040615
  3. EFFEXOR [Concomitant]
     Indication: DEPRESSION
     Route: 048
  4. TYLENOL (CAPLET) [Concomitant]
     Indication: PAIN
     Route: 048
  5. BENADRYL [Concomitant]
     Indication: SEASONAL ALLERGY
     Route: 048

REACTIONS (1)
  - GRANULOMA ANNULARE [None]
